FAERS Safety Report 26087673 (Version 1)
Quarter: 2025Q4

REPORT INFORMATION
  Report Type: Spontaneous
  Country: SA (occurrence: SA)
  Receive Date: 20251125
  Receipt Date: 20251125
  Transmission Date: 20260117
  Serious: Yes (Hospitalization)
  Sender: RegCon Holdings
  Company Number: SA-REGCON HOLDINGS, LLC-2025BEX00056

PATIENT
  Age: 7 Decade
  Sex: Male

DRUGS (1)
  1. METFORMIN HYDROCHLORIDE [Suspect]
     Active Substance: METFORMIN HYDROCHLORIDE
     Indication: Type 2 diabetes mellitus
     Dosage: 500 MG, 2X/DAY (EVERY 12 H)

REACTIONS (1)
  - Haemolytic anaemia [Recovering/Resolving]
